FAERS Safety Report 6649852-5 (Version None)
Quarter: 2010Q1

REPORT INFORMATION
  Report Type: 
  Country: None (occurrence: None)
  Receive Date: 20100325
  Receipt Date: 20100316
  Transmission Date: 20100710
  Serious: Yes (Hospitalization)
  Sender: FDA-Public Use
  Company Number: ES-BIOGENIDEC-2010BI008824

PATIENT
  Age: 40 Year
  Sex: Male

DRUGS (9)
  1. TYSABRI [Suspect]
     Indication: MULTIPLE SCLEROSIS
     Route: 042
     Dates: start: 20080122, end: 20090520
  2. ZOLPIDEM [Concomitant]
     Indication: INSOMNIA
     Route: 048
  3. CARBAMAZEPINE [Concomitant]
     Indication: EPILEPSY
     Route: 048
  4. GABAPENTIN [Concomitant]
     Indication: MULTIPLE SCLEROSIS
     Route: 048
  5. DIAZEPAM [Concomitant]
     Indication: ANXIETY
     Route: 048
  6. NOCTAMID [Concomitant]
     Indication: INSOMNIA
     Route: 048
  7. VANDRAL RETARD [Concomitant]
     Indication: DEPRESSION
     Route: 048
  8. REXER FLAS [Concomitant]
     Indication: DEPRESSION
     Route: 048
  9. OMEPRAZOLE [Concomitant]
     Indication: HIATUS HERNIA
     Route: 048

REACTIONS (1)
  - SUBILEUS [None]
